FAERS Safety Report 8595073 (Version 2)
Quarter: 2014Q1

REPORT INFORMATION
  Report Type: Report from Study
  Country: GB (occurrence: GB)
  Receive Date: 20120604
  Receipt Date: 20140320
  Transmission Date: 20141002
  Serious: Yes (Life-Threatening, Hospitalization, Disabling)
  Sender: FDA-Public Use
  Company Number: GB-ROCHE-1006985

PATIENT
  Age: 60 Year
  Sex: Female
  Weight: 95 kg

DRUGS (11)
  1. RITUXIMAB [Suspect]
     Indication: RHEUMATOID ARTHRITIS
     Dosage: DRUG DISCONTINUED
     Route: 065
     Dates: start: 20110211
  2. RITUXIMAB [Suspect]
     Dosage: RESTARTED
     Route: 065
     Dates: start: 20110909, end: 20110923
  3. PREDNISOLONE [Concomitant]
  4. ALENDRONATE [Concomitant]
  5. ATENOLOL [Concomitant]
  6. BENDROFLUAZIDE [Concomitant]
  7. DICLOFENAC [Concomitant]
  8. ETORICOXIB [Concomitant]
  9. TRAMADOL [Concomitant]
  10. OMEPRAZOLE [Concomitant]
     Route: 065
  11. MYCOPHENOLATE MOFETIL [Concomitant]
     Route: 065
     Dates: start: 20121004

REACTIONS (3)
  - Vasculitis [Unknown]
  - Skin ulcer [Unknown]
  - Pyoderma gangrenosum [Unknown]
